FAERS Safety Report 7663287-8 (Version None)
Quarter: 2011Q3

REPORT INFORMATION
  Report Type: 
  Country: None (occurrence: None)
  Receive Date: 20110805
  Receipt Date: 20100831
  Transmission Date: 20111222
  Serious: No
  Sender: FDA-Public Use
  Company Number: US-ABBOTT-10P-163-0667278-00

PATIENT
  Sex: Female

DRUGS (4)
  1. ADVIL LIQUI-GELS [Concomitant]
     Indication: PROPHYLAXIS
     Dosage: BEFORE TAKING NIASPAN
  2. NIASPAN [Suspect]
     Indication: LOW DENSITY LIPOPROTEIN INCREASED
     Dosage: AT HS
     Dates: start: 20100820
  3. SIMVASTATIN [Concomitant]
     Indication: PRODUCT USED FOR UNKNOWN INDICATION
  4. ADVIL LIQUI-GELS [Concomitant]
     Indication: FLUSHING

REACTIONS (2)
  - PRURITUS [None]
  - FEELING HOT [None]
